FAERS Safety Report 9608351 (Version 2)
Quarter: 2013Q4

REPORT INFORMATION
  Report Type: Spontaneous
  Country: US (occurrence: US)
  Receive Date: 20131009
  Receipt Date: 20131120
  Transmission Date: 20140711
  Serious: No
  Sender: FDA-Public Use
  Company Number: US-PFIZER INC-2013285163

PATIENT
  Age: 55 Year
  Sex: Male
  Weight: 117 kg

DRUGS (2)
  1. VIAGRA [Suspect]
     Dosage: 100 MG, 1X/DAY
     Dates: start: 20130918
  2. LOTREL [Concomitant]
     Indication: HYPERTENSION
     Dosage: 5 MG, 1X/DAY

REACTIONS (1)
  - Headache [Recovered/Resolved]
